FAERS Safety Report 5679889-4 (Version None)
Quarter: 2008Q1

REPORT INFORMATION
  Report Type: 
  Country: None (occurrence: None)
  Receive Date: 20080321
  Receipt Date: 20080222
  Transmission Date: 20080703
  Serious: Yes (Other)
  Sender: FDA-Public Use
  Company Number: 2008S1003000

PATIENT

DRUGS (1)
  1. NAPROXEN [Suspect]

REACTIONS (6)
  - DEATH NEONATAL [None]
  - DRUG EXPOSURE DURING PREGNANCY [None]
  - NEONATAL ANURIA [None]
  - NEONATAL HYPOXIA [None]
  - NEONATAL RESPIRATORY FAILURE [None]
  - RENAL TUBULAR DISORDER [None]
